FAERS Safety Report 7993589-7 (Version None)
Quarter: 2011Q4

REPORT INFORMATION
  Report Type: 
  Country: None (occurrence: None)
  Receive Date: 20111219
  Receipt Date: 20111214
  Transmission Date: 20120403
  Serious: Yes (Life-Threatening, Other)
  Sender: FDA-Public Use
  Company Number: US-MERCK-1112USA01848

PATIENT
  Age: 13 Year
  Sex: Female

DRUGS (2)
  1. SINGULAIR [Suspect]
     Indication: ASTHMA
     Route: 048
  2. SINGULAIR [Suspect]
     Indication: ECZEMA
     Route: 048

REACTIONS (1)
  - SUICIDE ATTEMPT [None]
